FAERS Safety Report 7030588-6 (Version None)
Quarter: 2010Q4

REPORT INFORMATION
  Report Type: 
  Country: None (occurrence: None)
  Receive Date: 20101006
  Receipt Date: 20100927
  Transmission Date: 20110411
  Serious: Yes (Hospitalization)
  Sender: FDA-Public Use
  Company Number: CO-ROCHE-729363

PATIENT
  Sex: Male

DRUGS (4)
  1. CELLCEPT [Suspect]
     Dosage: FREQUENCY REPORTED AS QD
     Route: 048
     Dates: start: 20090802
  2. PREDNISOLONE [Concomitant]
     Dosage: FREQUENCY REPORTED AS QD
  3. OMEPRAZOLE [Concomitant]
     Dosage: FREQUENCY REPORTED AS QD
  4. FUROSEMIDE [Concomitant]

REACTIONS (1)
  - TRANSPLANT REJECTION [None]
